FAERS Safety Report 17130619 (Version 1)
Quarter: 2019Q4

REPORT INFORMATION
  Report Type: Spontaneous
  Country: DE (occurrence: DE)
  Receive Date: 20191209
  Receipt Date: 20191209
  Transmission Date: 20200122
  Serious: Yes (Hospitalization, Other)
  Sender: FDA-Public Use
  Company Number: DE-UCBSA-2019046301

PATIENT
  Sex: Female
  Weight: 83 kg

DRUGS (3)
  1. CIMZIA [Suspect]
     Active Substance: CERTOLIZUMAB PEGOL
     Indication: RHEUMATOID ARTHRITIS
     Dosage: UNK
     Dates: start: 201807, end: 2019
  2. MTX [METHOTREXATE] [Concomitant]
     Active Substance: METHOTREXATE SODIUM
     Indication: RHEUMATOID ARTHRITIS
     Dosage: 7.5 MILLIGRAM, WEEKLY (QW) INJECTION
     Dates: start: 201809, end: 201911
  3. CIMZIA [Suspect]
     Active Substance: CERTOLIZUMAB PEGOL
     Dosage: 200 MILLIGRAM, EV 2 WEEKS(QOW)
     Dates: start: 20190715, end: 20190815

REACTIONS (13)
  - Lymphadenopathy [Recovered/Resolved with Sequelae]
  - Night sweats [Unknown]
  - Tricuspid valve incompetence [Recovered/Resolved with Sequelae]
  - Blood pressure increased [Unknown]
  - Weight decreased [Unknown]
  - Meniscus injury [Unknown]
  - Rheumatoid arthritis [Recovered/Resolved with Sequelae]
  - Nephrolithiasis [Recovered/Resolved with Sequelae]
  - Hyperhidrosis [Unknown]
  - Blood cholesterol increased [Unknown]
  - Tinnitus [Unknown]
  - Sleep disorder [Unknown]
  - Mitral valve incompetence [Recovered/Resolved with Sequelae]

NARRATIVE: CASE EVENT DATE: 2019
